FAERS Safety Report 5107999-9 (Version None)
Quarter: 2006Q3

REPORT INFORMATION
  Report Type: 
  Country: None (occurrence: None)
  Receive Date: 20060919
  Receipt Date: 20060807
  Transmission Date: 20061208
  Serious: Yes (Hospitalization)
  Sender: FDA-Public Use
  Company Number: US-JNJFOC-20060801856

PATIENT
  Sex: Female
  Weight: 100.8 kg

DRUGS (5)
  1. REMICADE [Suspect]
     Route: 042
  2. REMICADE [Suspect]
     Indication: INFLAMMATORY BOWEL DISEASE
     Route: 042
  3. 5-ASA [Concomitant]
     Route: 048
  4. MP [Concomitant]
  5. METRONIDAZOLE [Concomitant]

REACTIONS (1)
  - CLOSTRIDIAL INFECTION [None]
